FAERS Safety Report 7259339-7 (Version None)
Quarter: 2011Q1

REPORT INFORMATION
  Report Type: 
  Country: None (occurrence: None)
  Receive Date: 20110129
  Receipt Date: 20100818
  Transmission Date: 20110831
  Serious: No
  Sender: FDA-Public Use
  Company Number: US-ABBOTT-10P-163-0665779-00

PATIENT
  Age: 37 Year
  Sex: Male
  Weight: 61.29 kg

DRUGS (2)
  1. HUMIRA [Suspect]
     Indication: CROHN'S DISEASE
     Route: 058
  2. HYDROCHLOROTHIAZIDE [Concomitant]
     Indication: HYPERTENSION

REACTIONS (6)
  - RASH MACULAR [None]
  - MUSCLE SPASMS [None]
  - HAEMATOCHEZIA [None]
  - PRURITUS [None]
  - DIARRHOEA [None]
  - BURNING SENSATION [None]
